FAERS Safety Report 11330454 (Version 2)
Quarter: 2017Q1

REPORT INFORMATION
  Report Type: Report from Study
  Country: US (occurrence: US)
  Receive Date: 20150803
  Receipt Date: 20170207
  Transmission Date: 20170428
  Serious: Yes (Hospitalization, Other)
  Sender: FDA-Public Use
  Company Number: US-BAXALTA-2015BLT000713

PATIENT
  Age: 34 Year
  Sex: Female
  Weight: 68 kg

DRUGS (6)
  1. GAMMAGARD LIQUID [Suspect]
     Active Substance: HUMAN IMMUNOGLOBULIN G
     Indication: IMMUNODEFICIENCY COMMON VARIABLE
     Dosage: 10 G, UNK
     Route: 058
     Dates: end: 20150625
  2. GAMMAGARD LIQUID [Suspect]
     Active Substance: HUMAN IMMUNOGLOBULIN G
     Dosage: 10 G, 1X A WEEK
     Route: 058
     Dates: start: 20150618, end: 20150618
  3. GAMMAGARD LIQUID [Suspect]
     Active Substance: HUMAN IMMUNOGLOBULIN G
     Dosage: 10 G, 1X A WEEK
     Route: 058
     Dates: start: 20150611, end: 201507
  4. GAMMAGARD LIQUID [Suspect]
     Active Substance: HUMAN IMMUNOGLOBULIN G
     Indication: PRIMARY IMMUNODEFICIENCY SYNDROME
     Dosage: 7 G, 1X A WEEK
     Route: 058
     Dates: start: 20150416, end: 20150611
  5. GAMMAGARD LIQUID [Suspect]
     Active Substance: HUMAN IMMUNOGLOBULIN G
     Dosage: 10 G, 1X A WEEK
     Route: 058
     Dates: start: 20150625, end: 20150625
  6. GAMMAGARD LIQUID [Suspect]
     Active Substance: HUMAN IMMUNOGLOBULIN G
     Dosage: 10 G, 1X A WEEK
     Route: 058
     Dates: start: 20150701, end: 20150701

REACTIONS (7)
  - Angioedema [Not Recovered/Not Resolved]
  - Urticaria [Not Recovered/Not Resolved]
  - Drug effect decreased [Unknown]
  - Wheezing [Not Recovered/Not Resolved]
  - Anxiety [Not Recovered/Not Resolved]
  - Angioedema [Not Recovered/Not Resolved]
  - Urticaria [Recovered/Resolved]

NARRATIVE: CASE EVENT DATE: 20150611
